FAERS Safety Report 5269362-X (Version None)
Quarter: 2007Q1

REPORT INFORMATION
  Report Type: 
  Country: None (occurrence: None)
  Receive Date: 20070319
  Receipt Date: 20070307
  Transmission Date: 20070707
  Serious: Yes (Other)
  Sender: FDA-Public Use
  Company Number: IE-PFIZER INC-2007018436

PATIENT

DRUGS (1)
  1. PREGABALIN [Suspect]

REACTIONS (1)
  - SEROTONIN SYNDROME [None]
